FAERS Safety Report 7526875-5 (Version None)
Quarter: 2011Q2

REPORT INFORMATION
  Report Type: 
  Country: None (occurrence: None)
  Receive Date: 20110606
  Receipt Date: 20110524
  Transmission Date: 20111010
  Serious: Yes (Hospitalization)
  Sender: FDA-Public Use
  Company Number: PHFR2011GB02532

PATIENT
  Sex: Male

DRUGS (2)
  1. CLOZAPINE [Suspect]
     Dosage: 600 MG, UNK
  2. CLOZAPINE [Suspect]
     Indication: SCHIZOPHRENIA
     Route: 048
     Dates: start: 20090825

REACTIONS (5)
  - CONVULSION [None]
  - FRACTURE [None]
  - ANTIPSYCHOTIC DRUG LEVEL INCREASED [None]
  - FALL [None]
  - PSYCHOTIC DISORDER [None]
